FAERS Safety Report 12345307 (Version 1)
Quarter: 2016Q2

REPORT INFORMATION
  Report Type: Spontaneous
  Country: US (occurrence: US)
  Receive Date: 20160507
  Receipt Date: 20160507
  Transmission Date: 20160815
  Serious: No
  Sender: FDA-Public Use
  Company Number: PHEH2016US011256

PATIENT
  Weight: 58.96 kg

DRUGS (1)
  1. AFINITOR [Suspect]
     Active Substance: EVEROLIMUS
     Indication: BREAST CANCER METASTATIC
     Dosage: UNK UNK, QD
     Route: 048

REACTIONS (2)
  - Furuncle [Recovered/Resolved]
  - Dermal cyst [Unknown]
